FAERS Safety Report 7652271-6 (Version None)
Quarter: 2011Q3

REPORT INFORMATION
  Report Type: 
  Country: None (occurrence: None)
  Receive Date: 20110803
  Receipt Date: 20110728
  Transmission Date: 20111222
  Serious: Yes (Hospitalization, Other)
  Sender: FDA-Public Use
  Company Number: PL-AMGEN-POLSP2011030040

PATIENT
  Sex: Female
  Weight: 68.7 kg

DRUGS (4)
  1. BLEOMYCIN [Concomitant]
     Indication: OVARIAN CANCER
     Dosage: 5 MG, UNK
     Route: 042
  2. CISPLATIN [Concomitant]
     Indication: OVARIAN CANCER
     Dosage: 130 MG, UNK
     Route: 042
  3. VINBLASTYNE [Concomitant]
     Indication: OVARIAN CANCER
     Dosage: 10 MG, UNK
  4. NEULASTA [Suspect]
     Indication: CHEMOTHERAPY
     Dosage: UNK, ONE TIME DOSE
     Route: 058
     Dates: start: 20110527, end: 20110527

REACTIONS (4)
  - HAEMOGLOBIN DECREASED [None]
  - BACTERIAL TOXAEMIA [None]
  - PLATELET COUNT DECREASED [None]
  - NEUTROPENIA [None]
